FAERS Safety Report 8514739-X (Version None)
Quarter: 2012Q3

REPORT INFORMATION
  Report Type: 
  Country: None (occurrence: None)
  Receive Date: 20120717
  Receipt Date: 20120712
  Transmission Date: 20120928
  Serious: Yes (Hospitalization)
  Sender: FDA-Public Use
  Company Number: US-BAYER-2012-070601

PATIENT
  Age: 27 Year
  Sex: Female
  Weight: 81.179 kg

DRUGS (8)
  1. OXYCODONE HCL AND ACETAMINOPHEN [Concomitant]
     Dosage: 5 MG/500 MG, UNK
     Dates: start: 20091225, end: 20091230
  2. DROSPIRENONE AND ETHINYL ESTRADIOL [Suspect]
     Dosage: UNK
  3. YAZ [Suspect]
     Dosage: UNK
  4. PROAIR HFA [Concomitant]
     Dosage: 108 MCG/ACT, UNK
     Dates: start: 20100120
  5. PROPRANOLOL HCL [Concomitant]
     Dosage: 10 MG, UNK
     Dates: start: 20100124
  6. NAPROXEN SODIUM [Concomitant]
     Dosage: 550 MG, UNK
     Dates: start: 20091230, end: 20100120
  7. TRAZODONE HCL [Concomitant]
     Dosage: 25 MG, UNK
     Dates: start: 20100125
  8. HYDROCODONE BITARTRATE + ACETAMINOPHEN [Concomitant]
     Dosage: 5MG/500MG, UNK
     Dates: start: 20100120

REACTIONS (1)
  - PULMONARY EMBOLISM [None]
